FAERS Safety Report 7706310-4 (Version None)
Quarter: 2011Q3

REPORT INFORMATION
  Report Type: 
  Country: None (occurrence: None)
  Receive Date: 20110824
  Receipt Date: 20110822
  Transmission Date: 20111222
  Serious: Yes (Hospitalization)
  Sender: FDA-Public Use
  Company Number: SE-ROCHE-791384

PATIENT
  Age: 66 Year
  Sex: Male

DRUGS (6)
  1. NAPROSYN [Suspect]
     Dosage: DOSE: 250 MGN DRUG REPORTED AS: NAPROSYN ENTERO
     Route: 048
     Dates: start: 20101130, end: 20110504
  2. BISOPROLOL FUMARATE [Concomitant]
     Dosage: DRUG REPORTED AS EMCONCOR FC TABLET 10 MG
  3. AMLODIPINE [Concomitant]
  4. WARFARIN SODIUM [Suspect]
     Dosage: DOSE: 2.5 MGN
     Route: 048
     Dates: start: 20110208, end: 20110504
  5. MOVIPREP [Concomitant]
  6. ALVEDON [Concomitant]

REACTIONS (1)
  - CEREBRAL HAEMORRHAGE [None]
